FAERS Safety Report 5274625-8 (Version None)
Quarter: 2007Q1

REPORT INFORMATION
  Report Type: 
  Country: None (occurrence: None)
  Receive Date: 20070320
  Receipt Date: 20070312
  Transmission Date: 20070707
  Serious: Yes (Other)
  Sender: FDA-Public Use
  Company Number: 238153

PATIENT
  Age: 89 Year
  Sex: Female

DRUGS (3)
  1. LUCENTIS [Suspect]
     Dates: start: 20061001
  2. POTASSIUM (POTASSIUM NOS) [Concomitant]
  3. ZOCOR [Concomitant]

REACTIONS (4)
  - CONCUSSION [None]
  - FACIAL BONES FRACTURE [None]
  - FALL [None]
  - VISUAL ACUITY REDUCED [None]
